FAERS Safety Report 9643507 (Version 2)
Quarter: 2014Q1

REPORT INFORMATION
  Report Type: Spontaneous
  Country: IT (occurrence: None)
  Receive Date: 20131022
  Receipt Date: 20140102
  Transmission Date: 20141002
  Serious: Yes (Other)
  Sender: FDA-Public Use
  Company Number: AUR-APL-2013-08665

PATIENT
  Age: 91 Year
  Sex: Female

DRUGS (8)
  1. CARVEDILOL [Suspect]
     Indication: ATRIAL FIBRILLATION
     Route: 048
     Dates: start: 20130601, end: 20131006
  2. CARDIOASPIRIN (ACETYLSALICYLIC ACID) [Concomitant]
  3. OMEPRAZOLE (OMEPRAZOLE) [Concomitant]
  4. RAMIPRIL (RAMIPRIL) [Concomitant]
  5. ALLOPURINOL [Concomitant]
  6. FUROSEMIDE (FUROSEMIDE) [Concomitant]
  7. FUROSEMIDE, SPIRONOLACTONE (OSYROL-LASIX) [Concomitant]
  8. OXYGEN (OXYGEN) [Concomitant]

REACTIONS (1)
  - Sinus bradycardia [None]
